FAERS Safety Report 7203702-7 (Version None)
Quarter: 2010Q4

REPORT INFORMATION
  Report Type: 
  Country: None (occurrence: None)
  Receive Date: 20101230
  Receipt Date: 20101222
  Transmission Date: 20110411
  Serious: Yes (Hospitalization)
  Sender: FDA-Public Use
  Company Number: JP-GENZYME-THYM-1002213

PATIENT
  Age: 71 Year
  Sex: Female
  Weight: 48 kg

DRUGS (17)
  1. THYMOGLOBULIN [Suspect]
     Indication: APLASTIC ANAEMIA
     Dosage: 120 MG, QD
     Route: 042
     Dates: start: 20100222, end: 20100226
  2. ACYCLOVIR [Concomitant]
     Indication: ANTIVIRAL PROPHYLAXIS
     Dosage: UNK
     Dates: start: 20100219
  3. ITRACONAZOLE [Concomitant]
     Indication: ANTIFUNGAL PROPHYLAXIS
     Dosage: UNK
     Dates: start: 20100219, end: 20100331
  4. FLUCONAZOLE [Concomitant]
     Indication: ANTIFUNGAL PROPHYLAXIS
     Dosage: UNK
     Dates: start: 20100401
  5. CIMETIDINE [Concomitant]
     Indication: PROPHYLAXIS AGAINST GASTROINTESTINAL ULCER
     Dosage: UNK
     Dates: start: 20100219
  6. SULFAMETHOXAZOLE AND TRIMETHOPRIM [Concomitant]
     Indication: ANTIFUNGAL PROPHYLAXIS
     Dosage: UNK
     Dates: start: 20100219
  7. CYCLOSPORINE [Concomitant]
     Indication: APLASTIC ANAEMIA
     Dosage: UNK
     Dates: start: 20100222
  8. PREDNISOLONE [Concomitant]
     Indication: APLASTIC ANAEMIA
     Dosage: UNK
     Dates: start: 20100227, end: 20100319
  9. LEVOFLOXACIN [Concomitant]
     Indication: ANTIBIOTIC PROPHYLAXIS
     Dosage: UNK
     Dates: start: 20100320, end: 20100325
  10. ZOPICLONE [Concomitant]
     Indication: INSOMNIA
     Dosage: UNK
     Dates: start: 20100219
  11. METHYLPREDNISOLONE SODIUM SUCCINATE [Concomitant]
     Indication: APLASTIC ANAEMIA
     Dosage: UNK
     Dates: start: 20100222, end: 20100226
  12. FILGRASTIM (GENETICAL RECOMBINATION) [Concomitant]
     Indication: APLASTIC ANAEMIA
     Dosage: UNK
     Dates: start: 20100226, end: 20100228
  13. FILGRASTIM (GENETICAL RECOMBINATION) [Concomitant]
     Dosage: UNK
     Dates: start: 20100304, end: 20100307
  14. FILGRASTIM (GENETICAL RECOMBINATION) [Concomitant]
     Dosage: UNK
     Dates: start: 20100311, end: 20100313
  15. FILGRASTIM (GENETICAL RECOMBINATION) [Concomitant]
     Dosage: UNK
     Dates: start: 20100318, end: 20100319
  16. FILGRASTIM (GENETICAL RECOMBINATION) [Concomitant]
     Dosage: UNK
     Dates: start: 20100326, end: 20100327
  17. RED BLOOD CELLS, CONCENTRATED [Concomitant]
     Indication: APLASTIC ANAEMIA
     Dosage: UNK
     Dates: start: 20100217, end: 20100326

REACTIONS (3)
  - ADENOVIRAL HAEMORRHAGIC CYSTITIS [None]
  - FEBRILE NEUTROPENIA [None]
  - HYPERTENSION [None]
